FAERS Safety Report 17450663 (Version 6)
Quarter: 2021Q3

REPORT INFORMATION
  Report Type: Report from Study
  Country: CO (occurrence: CO)
  Receive Date: 20200224
  Receipt Date: 20210805
  Transmission Date: 20211014
  Serious: Yes (Other)
  Sender: FDA-Public Use
  Company Number: NVSC2019CO047411

PATIENT
  Age: 63 Year
  Sex: Female
  Weight: 78 kg

DRUGS (8)
  1. REVOLADE [Suspect]
     Active Substance: ELTROMBOPAG OLAMINE
     Dosage: 50 MG, QD (ONCE DAILY)
     Route: 048
     Dates: start: 201908
  2. HYDROCHLOROTHIAZIDE. [Suspect]
     Active Substance: HYDROCHLOROTHIAZIDE
     Indication: HYPERTENSION
     Dosage: UNK, QD
     Route: 048
  3. REVOLADE [Suspect]
     Active Substance: ELTROMBOPAG OLAMINE
     Dosage: 25 MG, BID
     Route: 048
     Dates: start: 2018
  4. REVOLADE [Suspect]
     Active Substance: ELTROMBOPAG OLAMINE
     Indication: IMMUNE THROMBOCYTOPENIA
     Dosage: 75 MG, QD
     Route: 048
  5. AMLODIPINE BESILATE [Suspect]
     Active Substance: AMLODIPINE BESYLATE
     Dosage: 1 DF, QD
     Route: 048
  6. ATORVASTATIN [Suspect]
     Active Substance: ATORVASTATIN
     Indication: BLOOD TRIGLYCERIDES ABNORMAL
     Dosage: 20 MG, QD
     Route: 048
  7. LOSARTAN POTASSIUM. [Suspect]
     Active Substance: LOSARTAN POTASSIUM
     Indication: HYPERTENSION
     Dosage: 50 MG, Q12H
     Route: 048
  8. AMLODIPINE BESILATE [Suspect]
     Active Substance: AMLODIPINE BESYLATE
     Indication: HYPERTENSION
     Dosage: 10 MG
     Route: 048

REACTIONS (19)
  - Thrombosis [Unknown]
  - Immune thrombocytopenia [Unknown]
  - Spinal deformity [Unknown]
  - Gait disturbance [Unknown]
  - Varicose vein [Unknown]
  - Foot deformity [Unknown]
  - Vitamin D deficiency [Unknown]
  - Back pain [Recovering/Resolving]
  - Spinal osteoarthritis [Unknown]
  - Illness [Recovering/Resolving]
  - Platelet count decreased [Unknown]
  - Haemoglobin increased [Unknown]
  - Inappropriate schedule of product administration [Unknown]
  - Feeling of despair [Recovered/Resolved]
  - Thirst [Unknown]
  - Osteoarthritis [Recovering/Resolving]
  - Disease recurrence [Unknown]
  - Spinal pain [Not Recovered/Not Resolved]
  - Laboratory test abnormal [Unknown]

NARRATIVE: CASE EVENT DATE: 20210324
